FAERS Safety Report 8521110-3 (Version None)
Quarter: 2012Q3

REPORT INFORMATION
  Report Type: 
  Country: None (occurrence: None)
  Receive Date: 20120712
  Receipt Date: 20120712
  Transmission Date: 20120928
  Serious: Yes (Other)
  Sender: FDA-Public Use
  Company Number: None

PATIENT
  Sex: Female

DRUGS (2)
  1. CIPRO [Suspect]
     Indication: CYSTITIS
     Dosage: 500MG 2 TIMES A DAY PO
     Route: 048
  2. FLAGYL [Suspect]
     Indication: CYSTITIS
     Dosage: 500MG 3 TIMES A DAY PO
     Route: 048

REACTIONS (2)
  - MYALGIA [None]
  - PARAESTHESIA [None]
